FAERS Safety Report 6214979-9 (Version None)
Quarter: 2009Q2

REPORT INFORMATION
  Report Type: 
  Country: None (occurrence: None)
  Receive Date: 20090604
  Receipt Date: 20080529
  Transmission Date: 20091009
  Serious: No
  Sender: FDA-Public Use
  Company Number: US-ASTRAZENECA-2008UW06669

PATIENT
  Age: 58 Year
  Sex: Male
  Weight: 111.4 kg

DRUGS (10)
  1. OMEPRAZOLE [Suspect]
     Indication: GASTROOESOPHAGEAL REFLUX DISEASE
     Route: 048
  2. OMEPRAZOLE [Suspect]
     Indication: HELICOBACTER INFECTION
     Route: 048
  3. OMEPRAZOLE [Suspect]
     Route: 048
  4. OMEPRAZOLE [Suspect]
     Route: 048
  5. OMEPRAZOLE [Suspect]
     Route: 048
     Dates: end: 20080501
  6. OMEPRAZOLE [Suspect]
     Route: 048
     Dates: end: 20080501
  7. ZANTAC [Concomitant]
     Indication: GASTROOESOPHAGEAL REFLUX DISEASE
     Route: 048
  8. ZANTAC [Concomitant]
     Indication: DYSPEPSIA
     Route: 048
  9. CHANTIX [Concomitant]
     Indication: SMOKING CESSATION THERAPY
     Route: 048
  10. SINGULAIR [Concomitant]
     Indication: HYPERSENSITIVITY
     Route: 048

REACTIONS (3)
  - BREAST PAIN [None]
  - GYNAECOMASTIA [None]
  - HELICOBACTER INFECTION [None]
